FAERS Safety Report 25521517 (Version 1)
Quarter: 2025Q3

REPORT INFORMATION
  Report Type: Spontaneous
  Country: GB (occurrence: GB)
  Receive Date: 20250706
  Receipt Date: 20250706
  Transmission Date: 20251021
  Serious: Yes (Other)
  Sender: AUROBINDO
  Company Number: GB-MHRA-MED-202506221552020130-KVJBC

PATIENT
  Sex: Male

DRUGS (1)
  1. MELATONIN [Suspect]
     Active Substance: MELATONIN
     Indication: Product used for unknown indication
     Route: 065

REACTIONS (1)
  - Joint swelling [Not Recovered/Not Resolved]
